FAERS Safety Report 13942883 (Version 1)
Quarter: 2017Q3

REPORT INFORMATION
  Report Type: Other
  Country: GB (occurrence: KR)
  Receive Date: 20170906
  Receipt Date: 20170906
  Transmission Date: 20171127
  Serious: Yes (Life-Threatening, Other)
  Sender: FDA-Public Use
  Company Number: KR-INTERNATIONAL MEDICATION SYSTEMS, LIMITED-2025662

PATIENT
  Age: 88 Year
  Sex: Male
  Weight: 69 kg

DRUGS (1)
  1. EPINEPHRINE INJECTION [Suspect]
     Active Substance: EPINEPHRINE
     Indication: HAEMORRHAGE

REACTIONS (1)
  - Drug ineffective [Unknown]
